FAERS Safety Report 7992541-5 (Version None)
Quarter: 2011Q4

REPORT INFORMATION
  Report Type: 
  Country: None (occurrence: None)
  Receive Date: 20111219
  Receipt Date: 20111209
  Transmission Date: 20120403
  Serious: Yes (Hospitalization)
  Sender: FDA-Public Use
  Company Number: PHHY2011JP105416

PATIENT
  Sex: Male

DRUGS (2)
  1. CYCLOSPORINE [Suspect]
     Indication: CORD BLOOD TRANSPLANT THERAPY
     Dosage: UNK UKN, UNK
  2. METHOTREXATE [Concomitant]
     Indication: CORD BLOOD TRANSPLANT THERAPY
     Dosage: 7.5 MG/M2, ON DAY 6, 11 AND 18

REACTIONS (5)
  - COUGH [None]
  - INTERSTITIAL LUNG DISEASE [None]
  - ENGRAFTMENT SYNDROME [None]
  - PYREXIA [None]
  - ESCHERICHIA SEPSIS [None]
